FAERS Safety Report 8339849-1 (Version None)
Quarter: 2012Q2

REPORT INFORMATION
  Report Type: 
  Country: None (occurrence: None)
  Receive Date: 20120507
  Receipt Date: 20120501
  Transmission Date: 20120825
  Serious: Yes (Other)
  Sender: FDA-Public Use
  Company Number: US-PFIZER INC-2012107192

PATIENT
  Sex: Female
  Weight: 57.596 kg

DRUGS (3)
  1. TYLENOL (CAPLET) [Concomitant]
     Indication: HEADACHE
     Dosage: 500 MG, AS NEEDED
  2. PRISTIQ [Suspect]
     Indication: ANXIETY
  3. PRISTIQ [Suspect]
     Indication: DEPRESSION
     Dosage: 50 MG, DAILY
     Route: 048
     Dates: start: 20110101, end: 20120101

REACTIONS (7)
  - NAUSEA [None]
  - DIZZINESS [None]
  - DRUG WITHDRAWAL SYNDROME [None]
  - INSOMNIA [None]
  - DIABETES MELLITUS [None]
  - DRUG INTOLERANCE [None]
  - TOOTHACHE [None]
